FAERS Safety Report 9986069 (Version 1)
Quarter: 2014Q1

REPORT INFORMATION
  Report Type: Report from Study
  Country: US (occurrence: US)
  Receive Date: 20140307
  Receipt Date: 20140307
  Transmission Date: 20141002
  Serious: Yes (Other)
  Sender: FDA-Public Use
  Company Number: US-ABBVIE-14P-163-1208701-00

PATIENT
  Age: 36 Year
  Sex: Female

DRUGS (3)
  1. HUMIRA [Suspect]
     Indication: CROHN^S DISEASE
     Dates: start: 201309
  2. PENTASA [Concomitant]
     Indication: CROHN^S DISEASE
     Dosage: 2 PILLS
     Dates: start: 201312
  3. PROBIOTIC [Concomitant]
     Indication: CROHN^S DISEASE
     Dates: start: 201312

REACTIONS (5)
  - Lymphadenopathy [Not Recovered/Not Resolved]
  - Local swelling [Unknown]
  - Neck pain [Unknown]
  - Pyrexia [Unknown]
  - Drug ineffective [Unknown]
